FAERS Safety Report 10461846 (Version 1)
Quarter: 2014Q3

REPORT INFORMATION
  Report Type: Spontaneous
  Country: US (occurrence: None)
  Receive Date: 20140917
  Receipt Date: 20140917
  Transmission Date: 20150326
  Serious: No
  Sender: FDA-Public Use
  Company Number: None

PATIENT

DRUGS (2)
  1. RISPERDAL [Suspect]
     Active Substance: RISPERIDONE
  2. SERZONE [Suspect]
     Active Substance: NEFAZODONE HYDROCHLORIDE

REACTIONS (3)
  - Aggression [None]
  - Expired product administered [None]
  - Anger [None]

NARRATIVE: CASE EVENT DATE: 200109
